FAERS Safety Report 16966412 (Version 1)
Quarter: 2019Q4

REPORT INFORMATION
  Report Type: Spontaneous
  Country: US (occurrence: US)
  Receive Date: 20190909
  Receipt Date: 20190909
  Transmission Date: 20200122
  Serious: Yes (Hospitalization)
  Sender: FDA-Public Use
  Company Number: None

PATIENT
  Age: 71 Year
  Sex: Male

DRUGS (1)
  1. GEMCITABINE. [Suspect]
     Active Substance: GEMCITABINE
     Indication: PROSTATE CANCER
     Route: 042
     Dates: start: 20190613

REACTIONS (6)
  - Melaena [None]
  - Duodenitis [None]
  - Haemoglobin decreased [None]
  - Pancytopenia [None]
  - Anaemia [None]
  - Gastritis [None]

NARRATIVE: CASE EVENT DATE: 20190703
